FAERS Safety Report 10551513 (Version 1)
Quarter: 2014Q4

REPORT INFORMATION
  Report Type: Spontaneous
  Country: US (occurrence: None)
  Receive Date: 20141028
  Receipt Date: 20141028
  Transmission Date: 20150529
  Serious: Yes (Hospitalization)
  Sender: FDA-Public Use
  Company Number: None

PATIENT
  Age: 55 Year
  Sex: Male
  Weight: 127.01 kg

DRUGS (3)
  1. PROPOFOL. [Suspect]
     Active Substance: PROPOFOL
  2. ZOFRAN [Suspect]
     Active Substance: ONDANSETRON HYDROCHLORIDE
     Route: 042
  3. FENTANYL. [Suspect]
     Active Substance: FENTANYL

REACTIONS (2)
  - Serotonin syndrome [None]
  - Delayed recovery from anaesthesia [None]

NARRATIVE: CASE EVENT DATE: 20140519
